FAERS Safety Report 21494121 (Version 1)
Quarter: 2022Q4

REPORT INFORMATION
  Report Type: Report from Study
  Country: US (occurrence: US)
  Receive Date: 20221021
  Receipt Date: 20221021
  Transmission Date: 20230113
  Serious: Yes (Other)
  Sender: FDA-Public Use
  Company Number: US-BoehringerIngelheim-2022-BI-177077

PATIENT
  Age: 68 Year
  Sex: Female

DRUGS (1)
  1. OFEV [Suspect]
     Active Substance: NINTEDANIB
     Indication: Idiopathic pulmonary fibrosis
     Route: 048
     Dates: start: 20220210

REACTIONS (23)
  - Pulmonary fibrosis [Not Recovered/Not Resolved]
  - Dizziness [Not Recovered/Not Resolved]
  - Chills [Not Recovered/Not Resolved]
  - Cough [Recovering/Resolving]
  - Haemoptysis [Recovering/Resolving]
  - Asthenia [Not Recovered/Not Resolved]
  - Viral infection [Recovering/Resolving]
  - Malaise [Not Recovered/Not Resolved]
  - Total lung capacity abnormal [Not Recovered/Not Resolved]
  - Productive cough [Unknown]
  - Pyrexia [Unknown]
  - Pneumonia [Recovering/Resolving]
  - Back pain [Not Recovered/Not Resolved]
  - Chest pain [Not Recovered/Not Resolved]
  - Oropharyngeal pain [Not Recovered/Not Resolved]
  - Pain [Not Recovered/Not Resolved]
  - Nausea [Recovered/Resolved]
  - White blood cell count increased [Unknown]
  - Liver function test abnormal [Unknown]
  - Diarrhoea [Not Recovered/Not Resolved]
  - Vomiting [Not Recovered/Not Resolved]
  - Overweight [Unknown]
  - Gastrointestinal disorder [Unknown]

NARRATIVE: CASE EVENT DATE: 20220601
